FAERS Safety Report 18299022 (Version 2)
Quarter: 2020Q3

REPORT INFORMATION
  Report Type: Spontaneous
  Country: JP (occurrence: JP)
  Receive Date: 20200922
  Receipt Date: 20200923
  Transmission Date: 20201103
  Serious: Yes (Other)
  Sender: FDA-Public Use
  Company Number: JP-ELI_LILLY_AND_COMPANY-JP202004009507

PATIENT
  Age: 43 Year
  Sex: Female
  Weight: 42 kg

DRUGS (17)
  1. UPTRAVI [Suspect]
     Active Substance: SELEXIPAG
     Dosage: 0.8 MG, DAILY (0.4 MG/12 H)
     Route: 048
     Dates: start: 20170324, end: 20170608
  2. ADCIRCA [Suspect]
     Active Substance: TADALAFIL
     Dosage: 60 MG, DAILY
     Route: 065
  3. TRACLEER [Concomitant]
     Active Substance: BOSENTAN
     Indication: PULMONARY HYPERTENSION
     Dosage: 250 MG, UNKNOWN
     Route: 065
  4. LUPRAC [Concomitant]
     Active Substance: TORSEMIDE
     Indication: PRODUCT USED FOR UNKNOWN INDICATION
     Dosage: 8 MG, UNKNOWN
     Route: 065
     Dates: end: 20171225
  5. UPTRAVI [Suspect]
     Active Substance: SELEXIPAG
     Dosage: 1.2 MG, DAILY (0.6 MG/12 H)
     Route: 048
     Dates: start: 20170609, end: 20170803
  6. AZOSEMIDE [Concomitant]
     Active Substance: AZOSEMIDE
     Indication: CARDIAC FAILURE
     Dosage: 60 MG, UNKNOWN
     Route: 065
     Dates: start: 20171226, end: 20180426
  7. FERROUS CITRATE NA [Concomitant]
     Active Substance: SODIUM FERROUS CITRATE
     Indication: IRON DEFICIENCY ANAEMIA
     Dosage: 200 MG, UNKNOWN
     Route: 065
  8. UPTRAVI [Suspect]
     Active Substance: SELEXIPAG
     Dosage: 2 MG, DAILY (1 MG/12 H)
     Route: 048
     Dates: start: 20170915, end: 20171026
  9. UPTRAVI [Suspect]
     Active Substance: SELEXIPAG
     Indication: PULMONARY ARTERIAL HYPERTENSION
     Dosage: 0.4 MG, DAILY (0.2 MG/12 H)
     Route: 048
     Dates: start: 20170217, end: 20170323
  10. UPTRAVI [Suspect]
     Active Substance: SELEXIPAG
     Dosage: 1.6 MG, DAILY (0.8 MG/12 H)
     Route: 048
     Dates: start: 20170804, end: 20170914
  11. BISOPROLOL FUMARATE. [Concomitant]
     Active Substance: BISOPROLOL FUMARATE
     Indication: CARDIAC FAILURE
     Dosage: 1.252 MG, UNKNOWN
     Route: 065
     Dates: end: 20180426
  12. UPTRAVI [Suspect]
     Active Substance: SELEXIPAG
     Dosage: 2.8 MG, DAILY (1.4 MG/12 H)
     Route: 048
     Dates: start: 20171117, end: 20171225
  13. UPTRAVI [Suspect]
     Active Substance: SELEXIPAG
     Dosage: 3.2 MG, DAILY (1.6 MG/12 H)
     Route: 048
     Dates: start: 20171226
  14. ADCIRCA [Suspect]
     Active Substance: TADALAFIL
     Indication: PULMONARY ARTERIAL HYPERTENSION
     Dosage: 40 MG, DAILY
     Route: 065
     Dates: end: 20180426
  15. UPTRAVI [Suspect]
     Active Substance: SELEXIPAG
     Dosage: 2.4 MG, DAILY (1.2 MG/12 H)
     Route: 048
     Dates: start: 20171027, end: 20171116
  16. BISOPROLOL FUMARATE. [Concomitant]
     Active Substance: BISOPROLOL FUMARATE
     Dosage: 1.25 MG, UNKNOWN
     Route: 065
     Dates: end: 20180522
  17. AZOSEMIDE [Concomitant]
     Active Substance: AZOSEMIDE
     Dosage: 40 MG, UNKNOWN
     Route: 065

REACTIONS (2)
  - Brain natriuretic peptide increased [Not Recovered/Not Resolved]
  - Headache [Recovering/Resolving]

NARRATIVE: CASE EVENT DATE: 20170303
